FAERS Safety Report 8879572 (Version 2)
Quarter: 2013Q2

REPORT INFORMATION
  Report Type: Spontaneous
  Country: US (occurrence: US)
  Receive Date: 20121101
  Receipt Date: 20130410
  Transmission Date: 20140414
  Serious: Yes (Other)
  Sender: FDA-Public Use
  Company Number: US-BAYER-2012-113482

PATIENT
  Age: 24 Year
  Sex: Female
  Weight: 72.56 kg

DRUGS (3)
  1. YAZ [Suspect]
     Indication: PREMENSTRUAL SYNDROME
     Dosage: UNK
     Dates: start: 2008, end: 2010
  2. NEXIUM [Concomitant]
  3. BENTYL [Concomitant]

REACTIONS (10)
  - Gallbladder disorder [None]
  - Biliary dyskinesia [None]
  - Injury [None]
  - Pain [None]
  - Emotional distress [None]
  - Anxiety [None]
  - Psychological trauma [None]
  - Abdominal discomfort [None]
  - Weight decreased [None]
  - Dyspepsia [None]
